FAERS Safety Report 4777489-1 (Version None)
Quarter: 2005Q3

REPORT INFORMATION
  Report Type: 
  Country: None (occurrence: None)
  Receive Date: 20050915
  Receipt Date: 20050902
  Transmission Date: 20060218
  Serious: Yes (Hospitalization)
  Sender: FDA-Public Use
  Company Number: US015933

PATIENT
  Age: 29 Year
  Sex: Female
  Weight: 101.6057 kg

DRUGS (8)
  1. GABITRIL [Suspect]
     Indication: ANXIETY
     Dosage: 4 MG QD ORAL
     Route: 048
     Dates: start: 20050720, end: 20050101
  2. GABITRIL [Suspect]
     Indication: INSOMNIA
     Dosage: 4 MG QD ORAL
     Route: 048
     Dates: start: 20050720, end: 20050101
  3. GABITRIL [Suspect]
     Indication: ANXIETY
     Dosage: 16 MG QD ORAL
     Route: 048
     Dates: end: 20050818
  4. GABITRIL [Suspect]
     Indication: INSOMNIA
     Dosage: 16 MG QD ORAL
     Route: 048
     Dates: end: 20050818
  5. GABITRIL [Suspect]
     Indication: ANXIETY
     Dosage: 32 MG QD ORAL
     Route: 048
     Dates: start: 20050819, end: 20050831
  6. GABITRIL [Suspect]
     Indication: INSOMNIA
     Dosage: 32 MG QD ORAL
     Route: 048
     Dates: start: 20050819, end: 20050831
  7. REMERON [Concomitant]
  8. NEURONTIN [Concomitant]

REACTIONS (2)
  - HEADACHE [None]
  - STATUS EPILEPTICUS [None]
